FAERS Safety Report 5647262-0 (Version None)
Quarter: 2008Q1

REPORT INFORMATION
  Report Type: 
  Country: None (occurrence: None)
  Receive Date: 20080131
  Receipt Date: 20071203
  Transmission Date: 20080703
  Serious: No
  Sender: FDA-Public Use
  Company Number: 163-21880-07120166

PATIENT
  Age: 27 Year
  Sex: Male
  Weight: 73.0291 kg

DRUGS (10)
  1. REVLIMID [Suspect]
     Indication: MULTIPLE MYELOMA
     Dosage: 25 MG, DAILY FOR 14 DAYS, THEN OFF FOR 7 DAYS, ORAL
     Route: 048
     Dates: start: 20071101
  2. DEXAMETHASONE TAB [Concomitant]
  3. ACYCLOVIR [Concomitant]
  4. VITAMIN B6 [Concomitant]
  5. GABAPENTIN [Concomitant]
  6. MAGNESIUM OXIDE (MAGNESIUM OXIDE) [Concomitant]
  7. AMYTRIPTYLINE [Concomitant]
  8. OXYCODONE HCL [Concomitant]
  9. ASPIRIN [Concomitant]
  10. SULFAMETHOXAZOLE AND TRIMETHOPRIM [Concomitant]

REACTIONS (1)
  - AMNESIA [None]
